FAERS Safety Report 17257132 (Version 5)
Quarter: 2022Q2

REPORT INFORMATION
  Report Type: Spontaneous
  Country: CA (occurrence: CA)
  Receive Date: 20200110
  Receipt Date: 20220607
  Transmission Date: 20220721
  Serious: Yes (Hospitalization, Other)
  Sender: FDA-Public Use
  Company Number: CA-SAMSUNG BIOEPIS-SB-2019-40855

PATIENT
  Age: 73 Year
  Sex: Female

DRUGS (44)
  1. INFLIXIMAB [Suspect]
     Active Substance: INFLIXIMAB
     Indication: Colitis ulcerative
     Route: 042
  2. INFLIXIMAB [Suspect]
     Active Substance: INFLIXIMAB
     Route: 065
  3. INFLIXIMAB [Suspect]
     Active Substance: INFLIXIMAB
     Route: 042
  4. ASACOL [Suspect]
     Active Substance: MESALAMINE
     Indication: Product used for unknown indication
     Route: 048
  5. ASACOL [Suspect]
     Active Substance: MESALAMINE
     Dosage: (ENTERIC COATED)
     Route: 048
  6. ASACOL [Suspect]
     Active Substance: MESALAMINE
     Route: 048
  7. FELODIPINE [Suspect]
     Active Substance: FELODIPINE
     Indication: Product used for unknown indication
     Dosage: (EXTENDED RELEASE)
     Route: 065
  8. FELODIPINE [Suspect]
     Active Substance: FELODIPINE
     Route: 065
  9. FELODIPINE [Suspect]
     Active Substance: FELODIPINE
     Route: 065
  10. FELODIPINE [Suspect]
     Active Substance: FELODIPINE
     Route: 065
  11. FELODIPINE [Suspect]
     Active Substance: FELODIPINE
     Route: 048
  12. FELODIPINE [Suspect]
     Active Substance: FELODIPINE
     Dosage: (EXTENDED RELEASE)
     Route: 048
  13. FELODIPINE [Suspect]
     Active Substance: FELODIPINE
     Route: 048
  14. FELODIPINE [Suspect]
     Active Substance: FELODIPINE
     Route: 065
  15. METFORMIN [Suspect]
     Active Substance: METFORMIN HYDROCHLORIDE
     Indication: Product used for unknown indication
     Route: 065
  16. PREDNISONE [Suspect]
     Active Substance: PREDNISONE
     Indication: Pruritus
     Route: 048
  17. PREDNISONE [Suspect]
     Active Substance: PREDNISONE
     Dosage: UNKNOWN
     Route: 065
  18. PREDNISONE [Suspect]
     Active Substance: PREDNISONE
     Route: 065
  19. PREMARIN [Suspect]
     Active Substance: ESTROGENS, CONJUGATED
     Indication: Product used for unknown indication
     Route: 065
  20. QUINAPRIL HYDROCHLORIDE [Suspect]
     Active Substance: QUINAPRIL HYDROCHLORIDE
     Indication: Product used for unknown indication
     Route: 065
  21. QUINAPRIL HYDROCHLORIDE [Suspect]
     Active Substance: QUINAPRIL HYDROCHLORIDE
     Route: 065
  22. QUINAPRIL HYDROCHLORIDE [Suspect]
     Active Substance: QUINAPRIL HYDROCHLORIDE
     Route: 065
  23. QUINAPRIL HYDROCHLORIDE [Suspect]
     Active Substance: QUINAPRIL HYDROCHLORIDE
     Route: 048
  24. QUINAPRIL HYDROCHLORIDE [Suspect]
     Active Substance: QUINAPRIL HYDROCHLORIDE
     Route: 048
  25. SYNTHROID [Suspect]
     Active Substance: LEVOTHYROXINE SODIUM
     Indication: Product used for unknown indication
     Route: 065
  26. TOVIAZ [Suspect]
     Active Substance: FESOTERODINE FUMARATE
     Indication: Product used for unknown indication
     Route: 065
  27. TOVIAZ [Suspect]
     Active Substance: FESOTERODINE FUMARATE
     Dosage: (EXTENDED RELEASE)
     Route: 065
  28. TOVIAZ [Suspect]
     Active Substance: FESOTERODINE FUMARATE
     Route: 065
  29. TOVIAZ [Suspect]
     Active Substance: FESOTERODINE FUMARATE
     Route: 065
  30. TOVIAZ [Suspect]
     Active Substance: FESOTERODINE FUMARATE
     Dosage: (EXTENDED RELEASE)
     Route: 065
  31. REMICADE [Suspect]
     Active Substance: INFLIXIMAB
     Indication: Colitis ulcerative
     Dosage: POWDER FOR SOLUTION INTRAVENOUS
     Route: 042
  32. REMICADE [Suspect]
     Active Substance: INFLIXIMAB
     Route: 042
  33. ESTROGENS, CONJUGATED\MEDROGESTONE [Suspect]
     Active Substance: ESTROGENS, CONJUGATED\MEDROGESTONE
     Indication: Product used for unknown indication
     Route: 065
  34. DULAGLUTIDE [Concomitant]
     Active Substance: DULAGLUTIDE
     Indication: Diabetes mellitus
     Route: 065
  35. DULAGLUTIDE [Concomitant]
     Active Substance: DULAGLUTIDE
     Dosage: UNKNOWN
     Route: 065
  36. METOCLOPRAMIDE HYDROCHLORIDE [Concomitant]
     Active Substance: METOCLOPRAMIDE HYDROCHLORIDE
     Indication: Product used for unknown indication
     Route: 065
  37. METOCLOPRAMIDE HYDROCHLORIDE [Concomitant]
     Active Substance: METOCLOPRAMIDE HYDROCHLORIDE
     Dosage: UNKNOWN
     Route: 065
  38. IMIPRAMINE HYDROCHLORIDE [Concomitant]
     Active Substance: IMIPRAMINE HYDROCHLORIDE
     Indication: Pruritus
     Route: 065
  39. IMIPRAMINE HYDROCHLORIDE [Concomitant]
     Active Substance: IMIPRAMINE HYDROCHLORIDE
     Dosage: UNKNOWN
     Route: 065
  40. METOCLOPRAMIDE HYDROCHLORIDE [Concomitant]
     Active Substance: METOCLOPRAMIDE HYDROCHLORIDE
     Indication: Diabetes mellitus
     Route: 065
  41. METOCLOPRAMIDE HYDROCHLORIDE [Concomitant]
     Active Substance: METOCLOPRAMIDE HYDROCHLORIDE
     Indication: Pruritus
     Dosage: UNKNOWN
     Route: 065
  42. IMIPRAMINE [Concomitant]
     Active Substance: IMIPRAMINE
     Indication: Product used for unknown indication
     Dosage: UNKNOWN
     Route: 065
  43. IMIPRAMINE [Concomitant]
     Active Substance: IMIPRAMINE
     Route: 065
  44. IMIPRAMINE [Concomitant]
     Active Substance: IMIPRAMINE
     Dosage: UNKNOWN
     Route: 065

REACTIONS (5)
  - Colitis [Unknown]
  - Colitis ulcerative [Unknown]
  - Decreased activity [Unknown]
  - Frequent bowel movements [Unknown]
  - Rectal haemorrhage [Unknown]
